FAERS Safety Report 8898860 (Version 1)
Quarter: 2012Q4

REPORT INFORMATION
  Report Type: 
  Country: US (occurrence: US)
  Receive Date: 20121108
  Receipt Date: 20121108
  Transmission Date: 20130627
  Serious: No
  Sender: FDA-Public Use
  Company Number: US-AMGEN-USASP2012027948

PATIENT
  Sex: Female
  Weight: 69.39 kg

DRUGS (8)
  1. ENBREL [Suspect]
     Indication: RHEUMATOID ARTHRITIS
     Dosage: 50 mg, qwk
     Route: 058
     Dates: start: 20110701
  2. METHOTREXATE [Concomitant]
  3. OMEGA 3                            /01334101/ [Concomitant]
  4. VITAMIN B12                        /00056201/ [Concomitant]
  5. FOLIC ACID [Concomitant]
  6. LEVOTHYROXINE [Concomitant]
  7. CALCIUM W/VITAMIN D                /00188401/ [Concomitant]
  8. CENTRUM SILVER                     /01292501/ [Concomitant]

REACTIONS (1)
  - Injection site bruising [Unknown]
